FAERS Safety Report 10354622 (Version 1)
Quarter: 2014Q3

REPORT INFORMATION
  Report Type: Spontaneous
  Country: US (occurrence: None)
  Receive Date: 20140729
  Receipt Date: 20140729
  Transmission Date: 20150326
  Serious: No
  Sender: FDA-Public Use
  Company Number: None

PATIENT
  Age: 47 Year
  Sex: Female

DRUGS (1)
  1. TRANEXAMIC ACID 650 MG [Suspect]
     Active Substance: TRANEXAMIC ACID
     Dosage: 2 PILLS THREE TIMES DAILY TAKEN BY MOUTH
     Route: 048
     Dates: start: 20140726, end: 20140726

REACTIONS (4)
  - Muscle spasms [None]
  - Nausea [None]
  - Discomfort [None]
  - Middle insomnia [None]

NARRATIVE: CASE EVENT DATE: 20140726
